FAERS Safety Report 17018706 (Version 1)
Quarter: 2019Q4

REPORT INFORMATION
  Report Type: Report from Study
  Country: None (occurrence: US)
  Receive Date: 20191111
  Receipt Date: 20191111
  Transmission Date: 20200122
  Serious: Yes (Hospitalization)
  Sender: FDA-Public Use
  Company Number: US-ABBVIE-19K-163-2992097-00

PATIENT
  Age: 61 Year
  Sex: Male

DRUGS (1)
  1. VENCLEXTA [Suspect]
     Active Substance: VENETOCLAX
     Indication: ACUTE MYELOID LEUKAEMIA
     Route: 048
     Dates: start: 20190710, end: 2019

REACTIONS (2)
  - Off label use [Unknown]
  - Bone marrow transplant [Recovering/Resolving]

NARRATIVE: CASE EVENT DATE: 2019
